FAERS Safety Report 8598432-3 (Version None)
Quarter: 2012Q3

REPORT INFORMATION
  Report Type: 
  Country: None (occurrence: None)
  Receive Date: 20120816
  Receipt Date: 20120810
  Transmission Date: 20120928
  Serious: Yes (Hospitalization, Other)
  Sender: FDA-Public Use
  Company Number: US-CELGENEUS-163-21880-12081302

PATIENT
  Sex: Male
  Weight: 108.51 kg

DRUGS (7)
  1. ZOMETA [Concomitant]
     Route: 065
  2. REVLIMID [Suspect]
     Indication: MULTIPLE MYELOMA
     Dosage: 25 MILLIGRAM
     Route: 048
     Dates: start: 20120306
  3. DEXAMETHASONE [Concomitant]
     Route: 065
  4. CYTOXAN [Concomitant]
     Route: 065
  5. HYDROMORPHONE HYDROCHLORIDE [Concomitant]
     Route: 065
  6. LOVENOX [Concomitant]
     Route: 065
  7. VELCADE [Concomitant]
     Route: 065

REACTIONS (1)
  - CLAVICLE FRACTURE [None]
